FAERS Safety Report 7983409-9 (Version None)
Quarter: 2011Q4

REPORT INFORMATION
  Report Type: 
  Country: None (occurrence: None)
  Receive Date: 20111215
  Receipt Date: 20111209
  Transmission Date: 20120403
  Serious: Yes (Other)
  Sender: FDA-Public Use
  Company Number: US-ASTRAZENECA-2011SE70713

PATIENT
  Age: 60 Year
  Sex: Male
  Weight: 73 kg

DRUGS (4)
  1. SEROQUEL [Suspect]
     Route: 048
     Dates: start: 20111101
  2. SEROQUEL [Suspect]
     Indication: SLEEP DISORDER
     Route: 048
  3. SEROQUEL [Suspect]
     Indication: SCHIZOPHRENIA
     Route: 048
  4. SEROQUEL [Suspect]
     Route: 048
     Dates: start: 20111101

REACTIONS (8)
  - MENTAL DISORDER [None]
  - FEELING ABNORMAL [None]
  - OFF LABEL USE [None]
  - DRUG DOSE OMISSION [None]
  - UPPER LIMB FRACTURE [None]
  - MALAISE [None]
  - SOMNOLENCE [None]
  - INAPPROPRIATE AFFECT [None]
